FAERS Safety Report 25905570 (Version 3)
Quarter: 2025Q4

REPORT INFORMATION
  Report Type: Report from Study
  Country: KR (occurrence: KR)
  Receive Date: 20251010
  Receipt Date: 20251104
  Transmission Date: 20260118
  Serious: Yes (Hospitalization)
  Sender: MYLAN
  Company Number: KR-MYLANLABS-2025M1073123

PATIENT
  Age: 65 Year
  Sex: Male
  Weight: 60 kg

DRUGS (22)
  1. PRETOMANID [Suspect]
     Active Substance: PRETOMANID
     Indication: Tuberculosis
     Dosage: 200 MILLIGRAM, QD
     Dates: start: 20250809, end: 20250930
  2. BEDAQUILINE [Suspect]
     Active Substance: BEDAQUILINE
     Indication: Tuberculosis
     Dosage: 400 MILLIGRAM, QD
     Dates: start: 20250809, end: 20250822
  3. BEDAQUILINE [Suspect]
     Active Substance: BEDAQUILINE
     Dosage: 200 MILLIGRAM
     Dates: start: 20250825, end: 20250930
  4. BEDAQUILINE [Suspect]
     Active Substance: BEDAQUILINE
     Dosage: 200 MILLIGRAM, 3XW
  5. LINEZOLID [Suspect]
     Active Substance: LINEZOLID
     Indication: Tuberculosis
     Dosage: 600 MILLIGRAM, QD
     Dates: start: 20250809, end: 20250930
  6. LINEZOLID [Suspect]
     Active Substance: LINEZOLID
     Dosage: 300 MILLIGRAM, QD
     Dates: start: 20251014
  7. NALOXONE HYDROCHLORIDE\OXYCODONE HYDROCHLORIDE [Concomitant]
     Active Substance: NALOXONE HYDROCHLORIDE\OXYCODONE HYDROCHLORIDE
     Indication: Bladder cancer
     Dosage: 1 DOSAGE FORM, BID
     Dates: start: 20250715
  8. TIROPRAMIDE [Concomitant]
     Active Substance: TIROPRAMIDE
     Indication: Bladder cancer
     Dosage: 100 MILLIGRAM, TID
     Dates: start: 20250715
  9. Gerd [Concomitant]
     Indication: Gastrooesophageal reflux disease
     Dosage: UNK, QID (1/PACK) (25)
     Dates: start: 20250624
  10. Rapison [Concomitant]
     Indication: Bladder cancer
     Dosage: 10 MILLIGRAM (EVERY POSTPRANDIAL)
  11. Rapison [Concomitant]
     Dosage: 20 MILLIGRAM (DAILY POSTPRANDIAL)
  12. HERBALS [Concomitant]
     Active Substance: HERBALS
     Indication: Adenocarcinoma metastatic
     Dosage: 1 DOSAGE FORM, TID
     Dates: start: 20250726
  13. Bioflor [Concomitant]
     Indication: Adenocarcinoma metastatic
     Dosage: 1 DOSAGE FORM, BID (250)
     Dates: start: 20240807
  14. Selebeta sr [Concomitant]
     Indication: Bladder cancer
     Dosage: 25 MILLIGRAM, QD
     Dates: start: 20250204
  15. Dulackhan [Concomitant]
     Indication: Bladder cancer
     Dosage: UNK, QD (1/PACK) (15)
     Dates: start: 20250718
  16. Encover [Concomitant]
     Indication: Bladder cancer
     Dosage: UNK, BID (1/PACK)
     Dates: start: 20250724
  17. Megace F [Concomitant]
     Indication: Bladder cancer
     Dosage: UNK, QD (1/PACK)
     Dates: start: 20250624
  18. Dages [Concomitant]
     Indication: Bladder cancer
     Dosage: 1 DOSAGE FORM, QD
     Dates: start: 20250724
  19. TOVIAZ [Concomitant]
     Active Substance: FESOTERODINE FUMARATE
     Indication: Bladder cancer
     Dosage: 4 MILLIGRAM, QD
     Dates: start: 20250718
  20. Dexahigh [Concomitant]
     Indication: Bladder cancer
     Dosage: 4 MILLIGRAM, BID
     Dates: start: 20250808
  21. Yuhan dexamethasone disodium phosphate [Concomitant]
     Indication: Bladder cancer
     Dosage: 10 MILLIGRAM, QD
     Dates: start: 20250811, end: 20250811
  22. LEUCOVORIN CALCIUM [Concomitant]
     Active Substance: LEUCOVORIN CALCIUM
     Indication: Bladder cancer
     Dosage: 680 MILLIGRAM, QD (1% 30ML)
     Dates: start: 20250811, end: 20250811

REACTIONS (8)
  - Blood creatinine increased [Recovered/Resolved]
  - Dehydration [Recovered/Resolved]
  - Hypophagia [Recovered/Resolved]
  - Oral candidiasis [Recovering/Resolving]
  - Asthenia [Recovered/Resolved]
  - Aspartate aminotransferase increased [Recovered/Resolved]
  - Alanine aminotransferase increased [Recovered/Resolved]
  - Nausea [Not Recovered/Not Resolved]

NARRATIVE: CASE EVENT DATE: 20250813
